FAERS Safety Report 15432286 (Version 2)
Quarter: 2018Q3

REPORT INFORMATION
  Report Type: Spontaneous
  Country: JP (occurrence: JP)
  Receive Date: 20180926
  Receipt Date: 20180928
  Transmission Date: 20181010
  Serious: Yes (Life-Threatening, Hospitalization, Other)
  Sender: FDA-Public Use
  Company Number: JP-PFM-2018-02188

PATIENT

DRUGS (12)
  1. MUCOSAL [Concomitant]
     Indication: AIRWAY SECRETION CLEARANCE THERAPY
     Dosage: 2MG/DAY
     Route: 048
     Dates: start: 20171208, end: 20180302
  2. INCREMIN [Concomitant]
     Active Substance: FERRIC PYROPHOSPHATE
     Indication: ANAEMIA NEONATAL
     Dosage: 120MG/DAY
     Route: 048
     Dates: start: 20171204
  3. PANVITAN [Concomitant]
     Indication: VITAMIN SUPPLEMENTATION
     Dosage: 500MG/DAY
     Route: 048
     Dates: start: 20171209
  4. EPOETIN ALFA [Concomitant]
     Active Substance: ERYTHROPOIETIN
     Indication: ANAEMIA NEONATAL
     Route: 058
  5. ONEALFA [Concomitant]
     Active Substance: ALFACALCIDOL
     Indication: RICKETS
     Dosage: 0.1MG/KG/DAY
     Route: 048
     Dates: start: 20171221
  6. ONEALFA [Concomitant]
     Active Substance: ALFACALCIDOL
     Indication: PROPHYLAXIS
  7. KAYTWO [Concomitant]
     Active Substance: MENATETRENONE
     Indication: VITAMIN SUPPLEMENTATION
     Dosage: UNK
     Route: 048
     Dates: start: 20171207, end: 20180301
  8. HEMANGIOL [Suspect]
     Active Substance: PROPRANOLOL HYDROCHLORIDE
     Indication: INFANTILE HAEMANGIOMA
     Dosage: 0.5 MG/KG, BID (2/DAY)
     Route: 048
     Dates: start: 20180201, end: 20180201
  9. YUBE?E [Concomitant]
     Indication: VITAMIN SUPPLEMENTATION
     Dosage: 4000MG/DAY
     Route: 048
     Dates: start: 20171222
  10. MUCODYNE [Concomitant]
     Active Substance: CARBOCYSTEINE
     Indication: AIRWAY SECRETION CLEARANCE THERAPY
     Dosage: 70MG/DAY
     Route: 048
     Dates: start: 20171208, end: 20180302
  11. SODIUM CHLORIDE. [Concomitant]
     Active Substance: SODIUM CHLORIDE
     Indication: HYPONATRAEMIA
     Dosage: 200MG/DAY
     Route: 048
     Dates: start: 20171207, end: 20180207
  12. SODIUM PHOSPHATE [Concomitant]
     Active Substance: SODIUM PHOSPHATE
     Indication: BLOOD PHOSPHORUS DECREASED
     Dosage: UNK
     Route: 048
     Dates: start: 20171213, end: 20180418

REACTIONS (7)
  - Contraindicated product administered [Unknown]
  - Bradycardia [Recovered/Resolved]
  - Apnoea [Unknown]
  - Tracheomalacia [Recovering/Resolving]
  - Pharyngeal stenosis [Unknown]
  - Off label use [Unknown]
  - Bronchomalacia [Recovering/Resolving]

NARRATIVE: CASE EVENT DATE: 20180201
